FAERS Safety Report 10383919 (Version 1)
Quarter: 2014Q1

REPORT INFORMATION
  Report Type: Spontaneous
  Country: US (occurrence: None)
  Receive Date: 20140306
  Receipt Date: 20140306
  Transmission Date: 20141002
  Serious: Yes (Hospitalization, Other)
  Sender: FDA-Public Use
  Company Number: 163-21880-13110031

PATIENT
  Age: 82 Year
  Sex: Male

DRUGS (5)
  1. REVLIMID (LENALIDOMIDE) (10 MILLIGRAM, CAPSULES) [Suspect]
     Indication: PLASMA CELL MYELOMA
     Route: 048
     Dates: start: 20130809, end: 20130830
  2. LISINOPRIL(LISINOPRIL)(UNKNOWN) [Concomitant]
  3. CHOLESTYRAMINE(COLESTYRAMINE)(UNKNOWN) [Concomitant]
  4. METOPROLOL(METOPROLOL)(UNKNOWN) [Concomitant]
  5. ZOCOR(SIMVASTATIN)(UNKNOWN) [Concomitant]

REACTIONS (6)
  - Insomnia [None]
  - Malaise [None]
  - Decreased appetite [None]
  - Vomiting [None]
  - Fatigue [None]
  - Dizziness [None]
